FAERS Safety Report 8194033 (Version 4)
Quarter: 2015Q1

REPORT INFORMATION
  Report Type: Spontaneous
  Country: FR (occurrence: FR)
  Receive Date: 20111021
  Receipt Date: 20150116
  Transmission Date: 20150721
  Serious: Yes (Hospitalization, Other)
  Sender: FDA-Public Use
  Company Number: PHHY2011FR90350

PATIENT
  Age: 17 Year
  Sex: Female

DRUGS (10)
  1. RIAMET [Suspect]
     Active Substance: ARTEMETHER\LUMEFANTRINE
     Indication: MALARIA
     Dosage: 4 DF, QD
     Route: 048
     Dates: start: 20110906, end: 20110907
  2. PERFALGAN [Suspect]
     Active Substance: ACETAMINOPHEN
     Indication: MALARIA
     Dosage: UNK
     Route: 042
     Dates: start: 20110906, end: 20110906
  3. METHYLPREDNISOLONE. [Concomitant]
     Active Substance: METHYLPREDNISOLONE
     Indication: PRODUCT USED FOR UNKNOWN INDICATION
     Dosage: 60 MG, QD
     Route: 065
     Dates: start: 20110927
  4. NOREPINEPHRINE [Concomitant]
     Active Substance: NOREPINEPHRINE\NOREPINEPHRINE BITARTRATE
     Indication: PRODUCT USED FOR UNKNOWN INDICATION
     Dosage: UNK
     Route: 065
     Dates: end: 20110908
  5. PLATELET [Concomitant]
     Indication: PRODUCT USED FOR UNKNOWN INDICATION
     Dosage: UNK
     Route: 065
  6. PERFALGAN [Suspect]
     Active Substance: ACETAMINOPHEN
     Dosage: UNK
     Route: 065
     Dates: start: 20110909, end: 20110915
  7. RIAMET [Suspect]
     Active Substance: ARTEMETHER\LUMEFANTRINE
     Dosage: UNK
     Route: 048
     Dates: start: 20110909, end: 20110912
  8. CEFTRIAXONE. [Suspect]
     Active Substance: CEFTRIAXONE
     Indication: MALARIA
     Dosage: 2 G, UNK
     Route: 042
     Dates: start: 20110906, end: 20110906
  9. ARTESUNATE [Suspect]
     Active Substance: ARTESUNATE
     Indication: MALARIA
     Dosage: 120 MG, BID
     Route: 042
     Dates: start: 20110907, end: 20110908
  10. PRIMPERAN [Suspect]
     Active Substance: METOCLOPRAMIDE HYDROCHLORIDE
     Indication: MALARIA
     Route: 042
     Dates: start: 20110906

REACTIONS (9)
  - Hypotension [Unknown]
  - Asthenia [Unknown]
  - Haemodynamic instability [Unknown]
  - Haemolytic anaemia [Recovering/Resolving]
  - Pyrexia [Unknown]
  - Hypocalcaemia [Unknown]
  - Tachypnoea [Unknown]
  - Haptoglobin decreased [Recovering/Resolving]
  - Hypophosphataemia [Unknown]

NARRATIVE: CASE EVENT DATE: 20110907
